FAERS Safety Report 6083658-3 (Version None)
Quarter: 2009Q1

REPORT INFORMATION
  Report Type: 
  Country: None (occurrence: None)
  Receive Date: 20090217
  Receipt Date: 20090206
  Transmission Date: 20090719
  Serious: Yes (Life-Threatening, Other)
  Sender: FDA-Public Use
  Company Number: GXBR2009US00607

PATIENT
  Age: 40 Year
  Sex: Female
  Weight: 53.1 kg

DRUGS (5)
  1. FLUOXETINE [Suspect]
     Indication: DEPRESSION
  2. NAPROXEN [Suspect]
  3. ZYRTEC [Suspect]
  4. CYMBALTA [Suspect]
     Indication: DEPRESSION
  5. RISPERDAL [Suspect]

REACTIONS (2)
  - MULTIPLE DRUG OVERDOSE INTENTIONAL [None]
  - SUICIDE ATTEMPT [None]
